FAERS Safety Report 10176126 (Version 3)
Quarter: 2018Q2

REPORT INFORMATION
  Report Type: Spontaneous
  Country: US (occurrence: US)
  Receive Date: 20140516
  Receipt Date: 20180626
  Transmission Date: 20180711
  Serious: No
  Sender: FDA-Public Use
  Company Number: US-PFIZER INC-2014131992

PATIENT
  Sex: Female

DRUGS (2)
  1. SULFACETAMIDE SODIUM W/SULFUR/UREA [Suspect]
     Active Substance: SULFACETAMIDE SODIUM\SULFUR
     Dosage: UNK
     Route: 061
  2. FLAGYL [Suspect]
     Active Substance: METRONIDAZOLE\METRONIDAZOLE HYDROCHLORIDE
     Dosage: UNK

REACTIONS (1)
  - Drug hypersensitivity [Unknown]
